FAERS Safety Report 19131780 (Version 4)
Quarter: 2021Q3

REPORT INFORMATION
  Report Type: Spontaneous
  Country: JP (occurrence: JP)
  Receive Date: 20210414
  Receipt Date: 20210920
  Transmission Date: 20211014
  Serious: Yes (Hospitalization, Other)
  Sender: FDA-Public Use
  Company Number: NVSJ2021JP005534

PATIENT
  Age: 54 Year
  Sex: Female

DRUGS (1)
  1. KYMRIAH [Suspect]
     Active Substance: TISAGENLECLEUCEL
     Indication: DIFFUSE LARGE B-CELL LYMPHOMA
     Dosage: CAR?EXPRESSING T CELLS: 4.2X10^8 CELLS
     Route: 041
     Dates: start: 20200716, end: 20200716

REACTIONS (10)
  - Paroxysmal nocturnal haemoglobinuria [Not Recovered/Not Resolved]
  - Rash [Recovered/Resolved]
  - Cytokine release syndrome [Unknown]
  - Cytopenia [Recovered/Resolved]
  - Pyrexia [Recovering/Resolving]
  - Haemophagocytic lymphohistiocytosis [Unknown]
  - Bone marrow failure [Recovered/Resolved]
  - Erythema [Recovering/Resolving]
  - Malaise [Unknown]
  - Rash [Recovering/Resolving]

NARRATIVE: CASE EVENT DATE: 20200718
